FAERS Safety Report 10446394 (Version 3)
Quarter: 2020Q3

REPORT INFORMATION
  Report Type: Report from Study
  Country: US (occurrence: US)
  Receive Date: 20140911
  Receipt Date: 20200717
  Transmission Date: 20201102
  Serious: Yes (Hospitalization)
  Sender: FDA-Public Use
  Company Number: US-ROCHE-1459662

PATIENT
  Age: 73 Year
  Sex: Female
  Weight: 51.9 kg

DRUGS (9)
  1. ZOFRAN [Concomitant]
     Active Substance: ONDANSETRON HYDROCHLORIDE
  2. KETOROLAC [Concomitant]
     Active Substance: KETOROLAC TROMETHAMINE
  3. CARBOPLATIN. [Suspect]
     Active Substance: CARBOPLATIN
     Indication: PAPILLARY SEROUS ENDOMETRIAL CARCINOMA
     Dosage: ON 26/SEP/2014, THE PATIENT RECEIVED THE LAST DOSE OF CARBOPLATIN
     Route: 042
     Dates: start: 20140725, end: 20140815
  4. TYLENOL [Concomitant]
     Active Substance: ACETAMINOPHEN
  5. BACTRIM [Concomitant]
     Active Substance: SULFAMETHOXAZOLE\TRIMETHOPRIM
  6. PACLITAXEL. [Suspect]
     Active Substance: PACLITAXEL
     Indication: PAPILLARY SEROUS ENDOMETRIAL CARCINOMA
     Dosage: ON 26/SEP/2014, THE PATIENT RECEIVED THE LAST DOSE OF PACLITAXEL
     Route: 042
     Dates: start: 20140725, end: 20140815
  7. TEMPRA [Concomitant]
     Active Substance: ACETAMINOPHEN
  8. TRASTUZUMAB. [Suspect]
     Active Substance: TRASTUZUMAB
     Indication: PAPILLARY SEROUS ENDOMETRIAL CARCINOMA
     Dosage: ON 26/SEP/2014, THE PATIENT RECEIVED THE LAST DOSE OF TRASTUZUMAB
     Route: 041
     Dates: start: 20140725, end: 20140815
  9. METOCLOPRAMIDE. [Concomitant]
     Active Substance: METOCLOPRAMIDE

REACTIONS (5)
  - Vomiting [Recovered/Resolved]
  - Back pain [Unknown]
  - Dehydration [Recovered/Resolved]
  - Food intolerance [Unknown]
  - Nausea [Recovered/Resolved]

NARRATIVE: CASE EVENT DATE: 20140819
